FAERS Safety Report 5200662-5 (Version None)
Quarter: 2006Q4

REPORT INFORMATION
  Report Type: 
  Country: None (occurrence: None)
  Receive Date: 20061016
  Receipt Date: 20060626
  Transmission Date: 20070319
  Serious: No
  Sender: FDA-Public Use
  Company Number: 2006SP002550

PATIENT
  Age: 65 Year
  Sex: Female

DRUGS (6)
  1. LUNESTA [Suspect]
     Indication: INSOMNIA
     Dosage: SEE IMAGE
     Route: 048
     Dates: start: 20060601, end: 20060601
  2. LUNESTA [Suspect]
     Indication: INSOMNIA
     Dosage: SEE IMAGE
     Route: 048
     Dates: start: 20060601, end: 20060625
  3. HYDROCHLOROTHIAZIDE [Concomitant]
  4. BENICAR [Concomitant]
  5. BENICAR HCT [Concomitant]
  6. PREMPRO [Concomitant]

REACTIONS (5)
  - BLOOD PRESSURE INCREASED [None]
  - DRUG INEFFECTIVE [None]
  - INSOMNIA [None]
  - PALPITATIONS [None]
  - PARADOXICAL DRUG REACTION [None]
